FAERS Safety Report 5447202-3 (Version None)
Quarter: 2007Q3

REPORT INFORMATION
  Report Type: 
  Country: None (occurrence: None)
  Receive Date: 20070910
  Receipt Date: 20070901
  Transmission Date: 20080115
  Serious: Yes (Other)
  Sender: FDA-Public Use
  Company Number: PHRM2007FR02148

PATIENT
  Age: 29 Year
  Sex: Female

DRUGS (2)
  1. LOBAMINE-CYSTEINE [Concomitant]
  2. LAMISIL [Suspect]
     Indication: NAIL TINEA
     Dosage: 250 MG, QD
     Route: 048
     Dates: end: 20070801

REACTIONS (2)
  - ANTEPARTUM HAEMORRHAGE [None]
  - DRUG EXPOSURE DURING PREGNANCY [None]
